FAERS Safety Report 17880214 (Version 1)
Quarter: 2020Q2

REPORT INFORMATION
  Report Type: Spontaneous
  Country: US (occurrence: US)
  Receive Date: 20200610
  Receipt Date: 20200610
  Transmission Date: 20200714
  Serious: No
  Sender: FDA-Public Use
  Company Number: US-KYOWAKIRIN-2020BKK009445

PATIENT

DRUGS (1)
  1. CRYSVITA [Suspect]
     Active Substance: BUROSUMAB-TWZA
     Indication: HEREDITARY HYPOPHOSPHATAEMIC RICKETS
     Dosage: 60 MG (2 INJECTIONS), EVERY 28 DAYS
     Route: 058
     Dates: start: 20191212, end: 202006

REACTIONS (3)
  - Peripheral swelling [Recovered/Resolved]
  - Back pain [Unknown]
  - Pain [Recovering/Resolving]

NARRATIVE: CASE EVENT DATE: 202005
